FAERS Safety Report 17276832 (Version 3)
Quarter: 2020Q1

REPORT INFORMATION
  Report Type: Spontaneous
  Country: US (occurrence: US)
  Receive Date: 20200116
  Receipt Date: 20200303
  Transmission Date: 20200409
  Serious: No
  Sender: FDA-Public Use
  Company Number: US-PFIZER INC-2019329270

PATIENT
  Age: 89 Year
  Sex: Male
  Weight: 79.83 kg

DRUGS (2)
  1. VYNDAQEL [Suspect]
     Active Substance: TAFAMIDIS MEGLUMINE
     Indication: AMYLOIDOSIS
     Dosage: 20 MG, DAILY
     Route: 048
     Dates: start: 20190725
  2. VYNDAQEL [Suspect]
     Active Substance: TAFAMIDIS MEGLUMINE
     Dosage: 80 MG,(4 CAPSULE BY MOUTH ONCE IN THE MORNING)
     Route: 048
     Dates: start: 201907

REACTIONS (7)
  - Product storage error [Unknown]
  - Wrong technique in product usage process [Unknown]
  - Periorbital swelling [Not Recovered/Not Resolved]
  - Product packaging issue [Unknown]
  - Poor quality product administered [Unknown]
  - Off label use [Unknown]
  - Product use in unapproved indication [Unknown]

NARRATIVE: CASE EVENT DATE: 201907
